FAERS Safety Report 12376263 (Version 1)
Quarter: 2016Q2

REPORT INFORMATION
  Report Type: Spontaneous
  Country: AT (occurrence: AT)
  Receive Date: 20160517
  Receipt Date: 20160517
  Transmission Date: 20160815
  Serious: Yes (Life-Threatening, Hospitalization)
  Sender: FDA-Public Use
  Company Number: AT-BAYER-2016-087951

PATIENT
  Sex: Female
  Weight: 64 kg

DRUGS (1)
  1. MIRENA [Suspect]
     Active Substance: LEVONORGESTREL
     Indication: CONTRACEPTION
     Dosage: 20 MCG/24HR, CONT
     Route: 015
     Dates: start: 2010, end: 2015

REACTIONS (10)
  - Anxiety [Recovered/Resolved]
  - Cellulitis [Recovered/Resolved]
  - Breast fibroma [Recovered/Resolved]
  - Breast pain [Recovered/Resolved]
  - Back pain [Recovered/Resolved]
  - Depression suicidal [Recovered/Resolved]
  - Gastritis [Recovered/Resolved]
  - Panic attack [Recovered/Resolved]
  - Oedema [Recovered/Resolved]
  - Palpitations [Recovered/Resolved]

NARRATIVE: CASE EVENT DATE: 2011
